FAERS Safety Report 7486383-7 (Version None)
Quarter: 2011Q2

REPORT INFORMATION
  Report Type: 
  Country: None (occurrence: None)
  Receive Date: 20110516
  Receipt Date: 20110516
  Transmission Date: 20111010
  Serious: Yes (Life-Threatening)
  Sender: FDA-Public Use
  Company Number: None

PATIENT
  Age: 76 Year
  Sex: Female

DRUGS (1)
  1. SPIRIVA [Suspect]
     Indication: CHRONIC OBSTRUCTIVE PULMONARY DISEASE
     Dosage: INHALE THE CONTENTS OF 1 CAPSULE ONCE DAILY AS DIRECTED IN THE PACKAGE LAST  3 WEEKS

REACTIONS (5)
  - MEMORY IMPAIRMENT [None]
  - DIZZINESS [None]
  - LOSS OF CONSCIOUSNESS [None]
  - SYNCOPE [None]
  - SKIN DISCOLOURATION [None]
